FAERS Safety Report 7382238 (Version 5)
Quarter: 2015Q1

REPORT INFORMATION
  Report Type: Spontaneous
  Country: US (occurrence: US)
  Receive Date: 20100510
  Receipt Date: 20150105
  Transmission Date: 20150721
  Serious: Yes (Life-Threatening, Hospitalization, Other)
  Sender: FDA-Public Use
  Company Number: US-BAYER-201021271NA

PATIENT
  Age: 38 Year
  Sex: Female
  Weight: 74 kg

DRUGS (11)
  1. YASMIN [Suspect]
     Active Substance: DROSPIRENONE\ETHINYL ESTRADIOL
     Dosage: AS USED DOSE: UNK
     Route: 048
     Dates: start: 200703, end: 20090315
  2. SIMVASTATIN. [Concomitant]
     Active Substance: SIMVASTATIN
     Indication: BLOOD CHOLESTEROL INCREASED
     Dosage: 40 MG, HS
     Dates: start: 200603
  3. DILAUDID [Concomitant]
     Active Substance: HYDROMORPHONE HYDROCHLORIDE
     Dosage: 1MG /0.5ML
     Route: 042
     Dates: start: 20090303
  4. BROMOCRIPTINE MESILATE [Concomitant]
     Active Substance: BROMOCRIPTINE
     Indication: HYPOTHALAMO-PITUITARY DISORDER
     Dates: start: 2006
  5. MORPHINE [Concomitant]
     Active Substance: MORPHINE
     Route: 042
  6. ASPIRIN. [Concomitant]
     Active Substance: ASPIRIN
     Indication: ANTICOAGULANT THERAPY
     Dosage: 325 MG, QD
     Route: 048
     Dates: start: 200903
  7. BROMOCRIPTINE [Concomitant]
     Active Substance: BROMOCRIPTINE
     Dosage: 7.5 MG, QD
  8. ZOCOR [Concomitant]
     Active Substance: SIMVASTATIN
     Dosage: UNK
  9. ORTHO-NOVUM 777 [Concomitant]
     Active Substance: ETHINYL ESTRADIOL\NORETHINDRONE
     Indication: CONTRACEPTION
  10. ZOFRAN [Concomitant]
     Active Substance: ONDANSETRON HYDROCHLORIDE
     Route: 042
  11. BROMOCRIPTINE [Concomitant]
     Active Substance: BROMOCRIPTINE
     Dosage: 2.5 MG, UNK,TAB/1THREE TIMES PER DAY
     Route: 048

REACTIONS (12)
  - Hemiparesis [None]
  - Thrombosis [None]
  - Asthenia [None]
  - Nausea [Unknown]
  - Basal ganglia stroke [None]
  - Facial paresis [None]
  - Pituitary tumour [Unknown]
  - Vomiting [Unknown]
  - VIIth nerve paralysis [None]
  - Fall [Unknown]
  - Cerebral artery thrombosis [None]
  - Dysarthria [None]

NARRATIVE: CASE EVENT DATE: 20090302
